FAERS Safety Report 7529769-4 (Version None)
Quarter: 2011Q2

REPORT INFORMATION
  Report Type: 
  Country: None (occurrence: None)
  Receive Date: 20110607
  Receipt Date: 20110523
  Transmission Date: 20111010
  Serious: Yes (Other)
  Sender: FDA-Public Use
  Company Number: JP-WATSON-2011-06797

PATIENT
  Age: 69 Year
  Sex: Female

DRUGS (1)
  1. OMEPRAZOLE [Suspect]
     Indication: GASTRITIS
     Dosage: 20 MG, DAILY
     Route: 048

REACTIONS (1)
  - HYPOKALAEMIA [None]
